FAERS Safety Report 17818540 (Version 3)
Quarter: 2020Q3

REPORT INFORMATION
  Report Type: Report from Study
  Country: GB (occurrence: GB)
  Receive Date: 20200523
  Receipt Date: 20200821
  Transmission Date: 20201102
  Serious: Yes (Other)
  Sender: FDA-Public Use
  Company Number: GB-UCBSA-2020020881

PATIENT
  Sex: Female

DRUGS (1)
  1. CERTOLIZUMAB PEGOL AUTOCLICKS [Suspect]
     Active Substance: CERTOLIZUMAB PEGOL
     Indication: ANKYLOSING SPONDYLITIS
     Dosage: 200 MILLIGRAM, EV 2 WEEKS(QOW)
     Route: 058
     Dates: start: 201911

REACTIONS (7)
  - Peripheral swelling [Unknown]
  - Sepsis [Unknown]
  - Night sweats [Unknown]
  - Pain in extremity [Unknown]
  - Urinary tract infection [Unknown]
  - Skin disorder [Unknown]
  - Alopecia [Unknown]
